FAERS Safety Report 21063621 (Version 1)
Quarter: 2022Q3

REPORT INFORMATION
  Report Type: Spontaneous
  Country: US (occurrence: US)
  Receive Date: 20220711
  Receipt Date: 20220711
  Transmission Date: 20221027
  Serious: Yes (Hospitalization)
  Sender: FDA-Public Use
  Company Number: US-ORG100016242-2022001456

PATIENT

DRUGS (5)
  1. EXPAREL [Suspect]
     Active Substance: BUPIVACAINE
     Indication: Shoulder arthroplasty
     Route: 053
  2. BUPIVACAINE [Suspect]
     Active Substance: BUPIVACAINE
     Indication: Shoulder arthroplasty
     Dosage: 3-5 ML
     Route: 053
  3. ACETAMINOPHEN [Concomitant]
     Active Substance: ACETAMINOPHEN
     Indication: Shoulder arthroplasty
     Dosage: 1000 MG, 650 MG EVERY 6 HOURS
     Route: 048
  4. SEVOFLURANE [Concomitant]
     Active Substance: SEVOFLURANE
     Indication: General anaesthesia
     Dosage: 1% TO 2%
  5. DESFLURANE [Concomitant]
     Active Substance: DESFLURANE
     Indication: General anaesthesia
     Dosage: 4% TO 6%

REACTIONS (1)
  - Post procedural drainage [Unknown]
